FAERS Safety Report 14797911 (Version 2)
Quarter: 2018Q2

REPORT INFORMATION
  Report Type: Spontaneous
  Country: US (occurrence: US)
  Receive Date: 20180424
  Receipt Date: 20180502
  Transmission Date: 20180711
  Serious: Yes (Other)
  Sender: FDA-Public Use
  Company Number: US-AUROBINDO-AUR-APL-2018-020292

PATIENT
  Age: 60 Year
  Sex: Male

DRUGS (3)
  1. VANCOMYCIN INJECTION [Suspect]
     Active Substance: VANCOMYCIN
     Indication: OCULAR DISCOMFORT
  2. VANCOMYCIN INJECTION [Suspect]
     Active Substance: VANCOMYCIN
     Indication: VISUAL IMPAIRMENT
     Route: 050
  3. CEFTAZIDIME. [Suspect]
     Active Substance: CEFTAZIDIME
     Indication: OCULAR DISCOMFORT
     Route: 065

REACTIONS (3)
  - Retinal vasculitis [Unknown]
  - Eye pain [Unknown]
  - Retinal haemorrhage [Unknown]
